FAERS Safety Report 20919308 (Version 2)
Quarter: 2022Q2

REPORT INFORMATION
  Report Type: Spontaneous
  Country: CA (occurrence: CA)
  Receive Date: 20220606
  Receipt Date: 20220616
  Transmission Date: 20220721
  Serious: Yes (Other)
  Sender: FDA-Public Use
  Company Number: CA-GLAXOSMITHKLINE-CA2021GSK266456

PATIENT

DRUGS (25)
  1. SUMATRIPTAN [Interacting]
     Active Substance: SUMATRIPTAN
     Indication: Migraine
     Dosage: 100 MG, 1D
     Route: 048
     Dates: start: 201701
  2. SUMATRIPTAN [Interacting]
     Active Substance: SUMATRIPTAN
     Dosage: 100 MG, 2 DAYS A WEEK
     Route: 048
  3. SUMATRIPTAN [Interacting]
     Active Substance: SUMATRIPTAN
     Dosage: 100 MG
     Route: 048
     Dates: start: 201711
  4. SUMATRIPTAN [Interacting]
     Active Substance: SUMATRIPTAN
     Dosage: 100 MG
     Route: 048
     Dates: start: 201802
  5. SUMATRIPTAN [Interacting]
     Active Substance: SUMATRIPTAN
     Dosage: 100 MG
     Route: 048
     Dates: start: 201810
  6. PAROXETINE [Interacting]
     Active Substance: PAROXETINE
     Indication: Mood swings
     Dosage: 10 MG, 1D
     Route: 048
     Dates: start: 201802
  7. DULOXETINE [Interacting]
     Active Substance: DULOXETINE
     Indication: Migraine
     Dosage: 30 MG, 1D
     Dates: start: 201708
  8. DULOXETINE [Interacting]
     Active Substance: DULOXETINE
     Indication: Anxiety
     Dosage: UNK
     Dates: start: 201711
  9. DULOXETINE [Interacting]
     Active Substance: DULOXETINE
     Indication: Depression
  10. ESCITALOPRAM [Interacting]
     Active Substance: ESCITALOPRAM OXALATE
     Indication: Anxiety
     Dosage: 5 MG, 1D
     Route: 048
     Dates: start: 201810
  11. ESCITALOPRAM [Interacting]
     Active Substance: ESCITALOPRAM OXALATE
     Indication: Depression
     Dosage: 7.5 MG, 1D
     Route: 048
     Dates: start: 201810
  12. ESCITALOPRAM [Interacting]
     Active Substance: ESCITALOPRAM OXALATE
     Dosage: 10 MG, 1D
     Route: 048
     Dates: start: 201810
  13. LEVONORGESTREL [Concomitant]
     Active Substance: LEVONORGESTREL
     Indication: Hormonal contraception
     Dosage: 100 UG
     Route: 048
  14. ETHINYL ESTRADIOL [Concomitant]
     Active Substance: ETHINYL ESTRADIOL
     Indication: Hormonal contraception
     Dosage: 20 UG, 1D
     Route: 048
  15. KETOROLAC [Concomitant]
     Active Substance: KETOROLAC TROMETHAMINE
     Indication: Migraine
     Dosage: 10 MG
     Route: 048
  16. PROMETHAZINE [Concomitant]
     Active Substance: PROMETHAZINE HYDROCHLORIDE
     Indication: Migraine
     Dosage: 25 MG, 1D
     Route: 048
  17. ZOLPIDEM [Concomitant]
     Active Substance: ZOLPIDEM TARTRATE
     Indication: Insomnia
     Dosage: 5 MG, AT BEDTIME
     Route: 048
  18. LORATADINE [Concomitant]
     Active Substance: LORATADINE
     Indication: Rhinitis allergic
     Dosage: 5 MG,ONCE OR TWICE A WEEK
     Route: 048
  19. PSEUDOEPHEDRINE [Concomitant]
     Active Substance: PSEUDOEPHEDRINE
     Indication: Rhinitis allergic
     Dosage: 120 MG,ONCE OR TWICE A WEEK
     Route: 048
  20. VITAMIN C [Concomitant]
     Active Substance: ASCORBIC ACID
     Indication: Nutritional supplementation
     Dosage: 125 MG, BID
     Route: 048
  21. BUSPIRONE [Concomitant]
     Active Substance: BUSPIRONE HYDROCHLORIDE
     Indication: Generalised anxiety disorder
     Dosage: UNK
  22. PREGABALIN [Concomitant]
     Active Substance: PREGABALIN
     Indication: Generalised anxiety disorder
     Dosage: UNK
  23. VENLAFAXINE [Concomitant]
     Active Substance: VENLAFAXINE HYDROCHLORIDE
     Indication: Major depression
     Dosage: UNK
  24. VENLAFAXINE [Concomitant]
     Active Substance: VENLAFAXINE HYDROCHLORIDE
     Indication: Generalised anxiety disorder
  25. ERGOCALCIFEROL [Concomitant]
     Active Substance: ERGOCALCIFEROL
     Indication: Supplementation therapy
     Dosage: 2000 IU, QD

REACTIONS (19)
  - Condition aggravated [Not Recovered/Not Resolved]
  - Depressive symptom [Not Recovered/Not Resolved]
  - Drug-disease interaction [Not Recovered/Not Resolved]
  - Middle insomnia [Not Recovered/Not Resolved]
  - Hyperhidrosis [Not Recovered/Not Resolved]
  - Body temperature increased [Not Recovered/Not Resolved]
  - Depressed mood [Not Recovered/Not Resolved]
  - Tearfulness [Not Recovered/Not Resolved]
  - Agitation [Not Recovered/Not Resolved]
  - Migraine [Not Recovered/Not Resolved]
  - Headache [Not Recovered/Not Resolved]
  - Anxiety [Not Recovered/Not Resolved]
  - Insomnia [Not Recovered/Not Resolved]
  - Dyspepsia [Not Recovered/Not Resolved]
  - Hot flush [Not Recovered/Not Resolved]
  - Drug interaction [Not Recovered/Not Resolved]
  - Drug ineffective [Not Recovered/Not Resolved]
  - Treatment noncompliance [Not Recovered/Not Resolved]
  - Serotonin syndrome [Not Recovered/Not Resolved]
